FAERS Safety Report 7636935-6 (Version None)
Quarter: 2011Q3

REPORT INFORMATION
  Report Type: 
  Country: None (occurrence: None)
  Receive Date: 20110726
  Receipt Date: 20110718
  Transmission Date: 20111222
  Serious: Yes (Hospitalization)
  Sender: FDA-Public Use
  Company Number: AU-AMGEN-AUSCT2011033314

PATIENT

DRUGS (19)
  1. PANTOPRAZOLE [Concomitant]
     Dosage: 40 MG, UNK
     Route: 048
     Dates: start: 20110101, end: 20110430
  2. METOCLOPRAMIDE [Concomitant]
     Dosage: UNK UNK, PRN
     Dates: start: 20110228, end: 20110418
  3. CAPECITABINE [Concomitant]
  4. COLOXYL WITH SENNA [Concomitant]
     Dosage: UNK UNK, PRN
     Route: 048
     Dates: start: 20110101
  5. PANITUMUMAB [Suspect]
     Indication: GASTROOESOPHAGEAL CANCER
     Dosage: 597 MG, Q3WK
     Route: 042
     Dates: start: 20110228, end: 20110411
  6. CISPLATIN [Concomitant]
     Indication: GASTROOESOPHAGEAL CANCER
  7. RAMIPRIL [Concomitant]
     Indication: HYPERTENSION
     Dosage: 5.0 A?G, QD
     Route: 048
     Dates: start: 20110101, end: 20110420
  8. DERMAVEEN [Concomitant]
  9. EMEND [Concomitant]
     Dosage: UNK MG, UNK
     Route: 048
     Dates: start: 20110321
  10. DEXAMETHASONE [Concomitant]
     Dosage: UNK MG, UNK
     Route: 048
     Dates: start: 20110228
  11. LOPERAMIDE [Concomitant]
     Dosage: UNK UNK, PRN
     Route: 048
     Dates: start: 20110321
  12. BENZYDAMINE [Concomitant]
     Dosage: 15 ML, UNK
     Dates: start: 20110422
  13. DOCETAXEL [Concomitant]
     Indication: GASTROOESOPHAGEAL CANCER
  14. MAGMIN [Concomitant]
     Dosage: 1000.0 MG, QD
     Route: 048
     Dates: start: 20110401
  15. MINOCYCLINE HCL [Concomitant]
     Dosage: 50 MG, BID
     Route: 048
     Dates: start: 20110321
  16. PHOSPHATE-SANDOZ [Concomitant]
     Dosage: UNK UNK, ONE TIME DOSE
     Route: 048
     Dates: start: 20110403, end: 20110403
  17. MAGNESIUM SULFATE [Concomitant]
     Dosage: 10 MMOL, UNK
     Route: 042
     Dates: start: 20110321, end: 20110403
  18. ONDANSETRON [Concomitant]
     Dosage: 8 MG, PRN
     Route: 048
     Dates: start: 20110321, end: 20110419
  19. ENOXAPARIN [Concomitant]
     Dosage: 40 MG, BID
     Route: 058
     Dates: start: 20110402, end: 20110404

REACTIONS (2)
  - DEHYDRATION [None]
  - SYNCOPE [None]
